FAERS Safety Report 5870844-8 (Version None)
Quarter: 2008Q3

REPORT INFORMATION
  Report Type: 
  Country: None (occurrence: None)
  Receive Date: 20080904
  Receipt Date: 20080901
  Transmission Date: 20090109
  Serious: Yes (Death)
  Sender: FDA-Public Use
  Company Number: NL-WYE-G02087208

PATIENT
  Age: 76 Year
  Sex: Female
  Weight: 44 kg

DRUGS (2)
  1. EFFEXOR XR [Suspect]
     Indication: DEPRESSION
     Route: 048
     Dates: start: 20080728, end: 20080806
  2. EFFEXOR XR [Suspect]
     Route: 048
     Dates: start: 20080807

REACTIONS (1)
  - CARDIAC DISORDER [None]
